FAERS Safety Report 10488669 (Version 1)
Quarter: 2014Q4

REPORT INFORMATION
  Report Type: Spontaneous
  Country: US (occurrence: None)
  Receive Date: 20141001
  Receipt Date: 20141001
  Transmission Date: 20150528
  Serious: Yes (Other)
  Sender: FDA-Public Use
  Company Number: None

PATIENT
  Sex: Female
  Weight: 138.6 kg

DRUGS (2)
  1. FLUOXETINE [Suspect]
     Active Substance: FLUOXETINE\FLUOXETINE HYDROCHLORIDE
     Indication: MAJOR DEPRESSION
     Dosage: 1 Q D
     Route: 048
     Dates: start: 20020623, end: 20050426
  2. FLUOXETINE [Suspect]
     Active Substance: FLUOXETINE\FLUOXETINE HYDROCHLORIDE
     Dosage: 1 Q D
     Route: 048
     Dates: start: 20020623, end: 20050426

REACTIONS (4)
  - Product substitution issue [None]
  - Blood pressure increased [None]
  - Diabetes mellitus [None]
  - Suicidal ideation [None]

NARRATIVE: CASE EVENT DATE: 20050426
